FAERS Safety Report 4551691-6 (Version None)
Quarter: 2005Q1

REPORT INFORMATION
  Report Type: 
  Country: None (occurrence: None)
  Receive Date: 20050111
  Receipt Date: 20041229
  Transmission Date: 20050727
  Serious: Yes (Life-Threatening)
  Sender: FDA-Public Use
  Company Number: 2005000069

PATIENT
  Age: 87 Year
  Sex: Female
  Weight: 63.5036 kg

DRUGS (15)
  1. DETROL LA [Suspect]
     Indication: POLLAKIURIA
     Dosage: 2 MG (2 MG, 1 IN 1 D), ORAL
     Route: 048
     Dates: start: 20000101
  2. ASPIRIN [Concomitant]
  3. GLUCOSAMINE (GLUCOSAMINE) [Concomitant]
  4. ATORVASTATIN (ATORVASTATIN) [Concomitant]
  5. ESCITALOPRAM (ESCITALOPRAM) [Concomitant]
  6. CARVEDILOL [Concomitant]
  7. TORSEMIDE [Concomitant]
  8. POTASSIUM (POTASSIUM) [Concomitant]
  9. CLONIDINE [Concomitant]
  10. CELECOXIB (CELECOXIB) [Concomitant]
  11. LANSOPRAZOLE [Concomitant]
  12. RALOXIFENE HCL [Concomitant]
  13. CYANOCOBALAMIN (CYANOCOBALAMIN) [Concomitant]
  14. ASCORBIC ACID [Concomitant]
  15. CALCIUM (CALCIUM) [Concomitant]

REACTIONS (4)
  - CEREBROVASCULAR ACCIDENT [None]
  - POLLAKIURIA [None]
  - THERAPY NON-RESPONDER [None]
  - URINARY INCONTINENCE [None]
